FAERS Safety Report 20541440 (Version 1)
Quarter: 2022Q1

REPORT INFORMATION
  Report Type: Report from Study
  Country: CA (occurrence: CA)
  Receive Date: 20220302
  Receipt Date: 20220302
  Transmission Date: 20220423
  Serious: Yes (Other)
  Sender: FDA-Public Use
  Company Number: CA-JNJFOC-20211247532

PATIENT
  Age: 57 Year
  Sex: Female
  Weight: 60 kg

DRUGS (1)
  1. REMICADE [Suspect]
     Active Substance: INFLIXIMAB
     Indication: Rheumatoid arthritis
     Dosage: EXPIRY DATE: 30-JUN-2024, 08-AUG-2024
     Route: 042
     Dates: start: 20051210

REACTIONS (2)
  - Uterine cancer [Unknown]
  - Mass [Unknown]

NARRATIVE: CASE EVENT DATE: 20211114
